FAERS Safety Report 15254142 (Version 1)
Quarter: 2018Q3

REPORT INFORMATION
  Report Type: Spontaneous
  Country: US (occurrence: US)
  Receive Date: 20180717
  Receipt Date: 20180717
  Transmission Date: 20181010
  Serious: No
  Sender: FDA-Public Use
  Company Number: None

PATIENT
  Age: 54 Year
  Sex: Female

DRUGS (2)
  1. SILIQ [Suspect]
     Active Substance: BRODALUMAB
     Indication: PSORIASIS
     Route: 058
     Dates: start: 201707
  2. SILIQ [Suspect]
     Active Substance: BRODALUMAB

REACTIONS (5)
  - Diarrhoea [None]
  - Pain [None]
  - Muscle spasms [None]
  - Influenza [None]
  - Gastrointestinal pain [None]

NARRATIVE: CASE EVENT DATE: 20180716
